FAERS Safety Report 7718134-2 (Version None)
Quarter: 2011Q3

REPORT INFORMATION
  Report Type: 
  Country: None (occurrence: None)
  Receive Date: 20110830
  Receipt Date: 20110822
  Transmission Date: 20111222
  Serious: Yes (Hospitalization)
  Sender: FDA-Public Use
  Company Number: CA-JNJFOC-20110810512

PATIENT
  Sex: Female

DRUGS (4)
  1. REMICADE [Suspect]
     Route: 042
     Dates: start: 20060801
  2. IMURAN [Concomitant]
     Route: 065
  3. REMICADE [Suspect]
     Indication: CROHN'S DISEASE
     Route: 042
     Dates: start: 20110715
  4. OXYCODONE HCL AND ACETAMINOPHEN [Concomitant]
     Route: 065

REACTIONS (3)
  - CHOLECYSTECTOMY [None]
  - HYSTEROSCOPY [None]
  - UTERINE DILATION AND CURETTAGE [None]
